FAERS Safety Report 7269546-5 (Version None)
Quarter: 2011Q1

REPORT INFORMATION
  Report Type: 
  Country: None (occurrence: None)
  Receive Date: 20110202
  Receipt Date: 20110119
  Transmission Date: 20110831
  Serious: Yes (Hospitalization)
  Sender: FDA-Public Use
  Company Number: US-ELI_LILLY_AND_COMPANY-US201010003231

PATIENT
  Sex: Female
  Weight: 48.526 kg

DRUGS (21)
  1. PREDNISONE [Concomitant]
  2. CALCIUM [Concomitant]
  3. CENTRUM [Concomitant]
  4. LORTAB [Concomitant]
  5. COMBIVENT [Concomitant]
  6. CARTIA XT [Concomitant]
  7. TRAMADOL HCL [Concomitant]
  8. TAZTIA [Concomitant]
  9. VITAMINS NOS [Concomitant]
  10. FORTEO [Suspect]
     Indication: OSTEOPOROSIS
     Dosage: 20 UG, DAILY (1/D)
     Route: 058
     Dates: start: 20100618
  11. SINGULAIR [Concomitant]
  12. SPIRIVA [Concomitant]
  13. MOBIC [Concomitant]
  14. DIOVAN [Concomitant]
  15. ALBUTEROL SULFATE AND IPRATROPIUM BROMIDE [Concomitant]
  16. IRON [Concomitant]
     Indication: ANAEMIA
  17. LORATADINE [Concomitant]
  18. PROTONIX [Concomitant]
  19. ASPIRIN [Concomitant]
  20. CITRACAL [Concomitant]
  21. DOXEPIN HCL [Concomitant]

REACTIONS (3)
  - ARTHROPATHY [None]
  - JOINT INJURY [None]
  - MUSCLE SPASMS [None]
